FAERS Safety Report 19933543 (Version 1)
Quarter: 2021Q4

REPORT INFORMATION
  Report Type: Spontaneous
  Country: IT (occurrence: IT)
  Receive Date: 20211008
  Receipt Date: 20211008
  Transmission Date: 20220303
  Serious: Yes (Death)
  Sender: FDA-Public Use
  Company Number: None

PATIENT
  Age: 74 Year
  Sex: Male
  Weight: 60 kg

DRUGS (1)
  1. PEMBROLIZUMAB [Suspect]
     Active Substance: PEMBROLIZUMAB
     Indication: Clear cell renal cell carcinoma
     Dosage: 200 MILLIGRAM
     Route: 041
     Dates: start: 20210726, end: 20210726

REACTIONS (9)
  - Dropped head syndrome [Fatal]
  - Muscular weakness [Fatal]
  - Fatigue [Fatal]
  - Myasthenia gravis [Fatal]
  - Ophthalmoplegia [Fatal]
  - Polymyositis [Fatal]
  - Dysphonia [Fatal]
  - Asthenia [Fatal]
  - Dysphagia [Fatal]

NARRATIVE: CASE EVENT DATE: 20210810
